FAERS Safety Report 16285069 (Version 2)
Quarter: 2019Q2

REPORT INFORMATION
  Report Type: Spontaneous
  Country: US (occurrence: US)
  Receive Date: 20190508
  Receipt Date: 20190520
  Transmission Date: 20190711
  Serious: Yes (Life-Threatening, Other)
  Sender: FDA-Public Use
  Company Number: US-DRREDDYS-USA/USA/19/0110060

PATIENT
  Age: 16 Year
  Sex: Female

DRUGS (5)
  1. CYCLOPHOSPHAMIDE. [Concomitant]
     Active Substance: CYCLOPHOSPHAMIDE
     Indication: HEPATOSPLENIC T-CELL LYMPHOMA
     Route: 065
  2. ETOPOSIDE. [Concomitant]
     Active Substance: ETOPOSIDE
     Indication: HEPATOSPLENIC T-CELL LYMPHOMA
     Route: 065
  3. PREDNISONE. [Concomitant]
     Active Substance: PREDNISONE
     Indication: HEPATOSPLENIC T-CELL LYMPHOMA
     Route: 065
  4. VINCRISTINE [Concomitant]
     Active Substance: VINCRISTINE
     Indication: HEPATOSPLENIC T-CELL LYMPHOMA
     Route: 065
  5. DOXORUBICIN HYDROCHLORIDE LIPOSOME INJECTION 20 MG/10 ML (2 MG/ML) AND [Suspect]
     Active Substance: DOXORUBICIN HYDROCHLORIDE
     Indication: HEPATOSPLENIC T-CELL LYMPHOMA
     Route: 065

REACTIONS (2)
  - Cardiotoxicity [Recovering/Resolving]
  - Cardiac failure [Recovering/Resolving]
